FAERS Safety Report 7197999-X (Version None)
Quarter: 2010Q4

REPORT INFORMATION
  Report Type: 
  Country: None (occurrence: None)
  Receive Date: 20101227
  Receipt Date: 20101206
  Transmission Date: 20110411
  Serious: Yes (Hospitalization, Other)
  Sender: FDA-Public Use
  Company Number: FR-JNJFOC-20101207497

PATIENT
  Age: 90 Year
  Sex: Female

DRUGS (8)
  1. DITROPAN XL [Suspect]
     Indication: URINARY INCONTINENCE
     Route: 048
  2. FUNGIZONE [Interacting]
     Indication: FUNGAL INFECTION
     Route: 065
  3. ECONAZOLE NITRATE [Suspect]
     Indication: FUNGAL INFECTION
     Route: 065
  4. ACTONEL [Concomitant]
     Indication: PRODUCT USED FOR UNKNOWN INDICATION
     Route: 065
  5. ECONAZOLE NITRATE [Concomitant]
     Indication: PRODUCT USED FOR UNKNOWN INDICATION
     Route: 065
  6. LOVENOX [Concomitant]
     Indication: PRODUCT USED FOR UNKNOWN INDICATION
     Route: 065
  7. SEROPLEX [Concomitant]
     Indication: PRODUCT USED FOR UNKNOWN INDICATION
     Route: 065
  8. BISOPROLOL [Concomitant]
     Indication: PRODUCT USED FOR UNKNOWN INDICATION
     Route: 065

REACTIONS (3)
  - CEREBROVASCULAR ACCIDENT [None]
  - DRUG INTERACTION [None]
  - FEMORAL NECK FRACTURE [None]
